FAERS Safety Report 4353598-6 (Version None)
Quarter: 2004Q2

REPORT INFORMATION
  Report Type: 
  Country: None (occurrence: None)
  Receive Date: 20040430
  Receipt Date: 20040427
  Transmission Date: 20050107
  Serious: Yes (Hospitalization, Other)
  Sender: FDA-Public Use
  Company Number: USA-2004-0012677

PATIENT
  Age: 56 Year
  Sex: Male
  Weight: 80.3 kg

DRUGS (5)
  1. OXYCONTIN [Suspect]
     Dosage: INTRAVENOUS
     Route: 042
     Dates: end: 20030623
  2. ZIAC (BISOPROLOL FUMURATE, HYDROCHLOROTHIAZIDE) [Concomitant]
  3. DOXAZOSIN (DOXAZOSIN) [Concomitant]
  4. VIOXX [Concomitant]
  5. ATARAX [Concomitant]

REACTIONS (5)
  - DRUG ABUSER [None]
  - ENDOCARDITIS [None]
  - MEDICATION ERROR [None]
  - TREATMENT NONCOMPLIANCE [None]
  - TRICUSPID VALVE DISEASE [None]
